FAERS Safety Report 5609542-4 (Version None)
Quarter: 2008Q1

REPORT INFORMATION
  Report Type: 
  Country: None (occurrence: None)
  Receive Date: 20080131
  Receipt Date: 20080128
  Transmission Date: 20080703
  Serious: Yes (Other)
  Sender: FDA-Public Use
  Company Number: SE-BOEHRINGER INGELHEIM GMBH, GERMANY-2008-DE-00579GD

PATIENT

DRUGS (2)
  1. TIPRANAVIR [Suspect]
  2. SIMVASTATIN [Suspect]

REACTIONS (1)
  - DRUG INTERACTION [None]
